FAERS Safety Report 14588816 (Version 1)
Quarter: 2018Q1

REPORT INFORMATION
  Report Type: Spontaneous
  Country: US (occurrence: US)
  Receive Date: 20180301
  Receipt Date: 20180301
  Transmission Date: 20180509
  Serious: No
  Sender: FDA-Public Use
  Company Number: US-TEVA-2018-US-855364

PATIENT

DRUGS (3)
  1. TOLTERODINE [Suspect]
     Active Substance: TOLTERODINE
     Indication: CYSTITIS
     Route: 048
     Dates: start: 20180103, end: 20180109
  2. SULFAMETHOXAZOLE W/TRIMETHOPRIM [Suspect]
     Active Substance: SULFAMETHOXAZOLE\TRIMETHOPRIM
     Indication: CYSTITIS
     Dosage: 400/80MG
     Route: 065
  3. ELIQUIS [Suspect]
     Active Substance: APIXABAN
     Route: 048
     Dates: start: 20180103

REACTIONS (4)
  - Oropharyngeal pain [Recovered/Resolved]
  - Vision blurred [Recovered/Resolved]
  - Drug ineffective [Unknown]
  - Dry mouth [Not Recovered/Not Resolved]

NARRATIVE: CASE EVENT DATE: 20170813
